FAERS Safety Report 6931376-9 (Version None)
Quarter: 2010Q3

REPORT INFORMATION
  Report Type: 
  Country: None (occurrence: None)
  Receive Date: 20100819
  Receipt Date: 20100816
  Transmission Date: 20110219
  Serious: Yes (Death, Hospitalization)
  Sender: FDA-Public Use
  Company Number: FR-JNJFOC-20100805191

PATIENT
  Age: 84 Year
  Sex: Female

DRUGS (4)
  1. DURAGESIC-100 [Suspect]
     Indication: ESCHAR
     Route: 062
  2. DURAGESIC-100 [Suspect]
     Route: 062
  3. ARICEPT [Concomitant]
     Indication: DEMENTIA ALZHEIMER'S TYPE
     Route: 065
  4. MICROPAKINE [Concomitant]
     Indication: DEMENTIA ALZHEIMER'S TYPE
     Route: 065

REACTIONS (8)
  - DEATH [None]
  - DRY MOUTH [None]
  - EATING DISORDER [None]
  - FLUID RETENTION [None]
  - GAZE PALSY [None]
  - GENERAL PHYSICAL HEALTH DETERIORATION [None]
  - HYPERSOMNIA [None]
  - SEDATION [None]
